FAERS Safety Report 11614018 (Version 1)
Quarter: 2015Q4

REPORT INFORMATION
  Report Type: Spontaneous
  Country: US (occurrence: US)
  Receive Date: 20151008
  Receipt Date: 20151008
  Transmission Date: 20160304
  Serious: No
  Sender: FDA-Public Use
  Company Number: US-UNIQUE PHARMACEUTICAL LABORATORIES-2015RIS00076

PATIENT
  Age: 8 Year
  Sex: Male
  Weight: 27.21 kg

DRUGS (6)
  1. IRON [Concomitant]
     Active Substance: IRON
  2. CIPROFLOXACIN. [Suspect]
     Active Substance: CIPROFLOXACIN
     Indication: URINARY TRACT INFECTION
     Dosage: 250 MG, ONCE
     Route: 048
     Dates: start: 20141223, end: 20141223
  3. PROGRAF [Concomitant]
     Active Substance: TACROLIMUS\TACROLIMUS ANHYDROUS
  4. PREDNISOLONE. [Concomitant]
     Active Substance: PREDNISOLONE
  5. CELLCEPT [Concomitant]
     Active Substance: MYCOPHENOLATE MOFETIL\MYCOPHENOLATE MOFETIL HYDROCHLORIDE
  6. VITAMIN D [Concomitant]
     Active Substance: CHOLECALCIFEROL

REACTIONS (7)
  - Scrotal swelling [Recovered/Resolved]
  - Cheilitis [Recovered/Resolved]
  - Pruritus genital [Recovered/Resolved]
  - Lip swelling [Recovered/Resolved]
  - Penile swelling [Recovered/Resolved]
  - Penile erythema [Recovered/Resolved]
  - Scrotal erythema [Recovered/Resolved]

NARRATIVE: CASE EVENT DATE: 20141223
